FAERS Safety Report 26072004 (Version 1)
Quarter: 2025Q4

REPORT INFORMATION
  Report Type: Spontaneous
  Country: US (occurrence: US)
  Receive Date: 20251120
  Receipt Date: 20251120
  Transmission Date: 20260117
  Serious: No
  Sender: PFIZER
  Company Number: US-PFIZER INC-202500225266

PATIENT
  Age: 36 Year
  Sex: Female

DRUGS (1)
  1. ZAVZPRET [Suspect]
     Active Substance: ZAVEGEPANT HYDROCHLORIDE
     Dosage: UNK
     Dates: start: 20251113, end: 20251113

REACTIONS (8)
  - Nausea [Recovering/Resolving]
  - Heart rate increased [Recovering/Resolving]
  - Migraine [Recovering/Resolving]
  - Condition aggravated [Recovering/Resolving]
  - Neck pain [Recovering/Resolving]
  - Nasal obstruction [Recovering/Resolving]
  - Cognitive disorder [Recovering/Resolving]
  - Product after taste [Recovering/Resolving]

NARRATIVE: CASE EVENT DATE: 20251113
